FAERS Safety Report 19945108 (Version 1)
Quarter: 2021Q4

REPORT INFORMATION
  Report Type: Spontaneous
  Country: US (occurrence: US)
  Receive Date: 20211011
  Receipt Date: 20211011
  Transmission Date: 20220303
  Serious: No
  Sender: FDA-Public Use
  Company Number: US-AMGEN INC.-USASP2021155823

PATIENT
  Sex: Male

DRUGS (1)
  1. AIMOVIG [Suspect]
     Active Substance: ERENUMAB-AOOE
     Indication: Migraine prophylaxis
     Dosage: UNK
     Route: 058
     Dates: start: 20210930

REACTIONS (1)
  - Penile swelling [Unknown]

NARRATIVE: CASE EVENT DATE: 20210101
